FAERS Safety Report 9215315 (Version 1)
Quarter: 2013Q2

REPORT INFORMATION
  Report Type: Spontaneous
  Country: US (occurrence: US)
  Receive Date: 20130405
  Receipt Date: 20130405
  Transmission Date: 20140414
  Serious: Yes (Hospitalization)
  Sender: FDA-Public Use
  Company Number: GXBR2013US000834

PATIENT
  Sex: Male

DRUGS (1)
  1. ENOXAPARIN SODIUM [Suspect]
     Indication: PULMONARY EMBOLISM
     Dosage: UNK MG, BID
     Route: 058
     Dates: start: 20130215

REACTIONS (2)
  - Myocardial infarction [Unknown]
  - Pulmonary haemorrhage [Unknown]
